FAERS Safety Report 11410786 (Version 1)
Quarter: 2015Q3

REPORT INFORMATION
  Report Type: Spontaneous
  Country: US (occurrence: US)
  Receive Date: 20150824
  Receipt Date: 20150824
  Transmission Date: 20151125
  Serious: No
  Sender: FDA-Public Use
  Company Number: US-GLAXOSMITHKLINE-US2015GSK101611

PATIENT

DRUGS (2)
  1. XELODA [Suspect]
     Active Substance: CAPECITABINE
     Indication: PRODUCT USED FOR UNKNOWN INDICATION
  2. TYKERB [Suspect]
     Active Substance: LAPATINIB DITOSYLATE
     Indication: PRODUCT USED FOR UNKNOWN INDICATION

REACTIONS (1)
  - Diarrhoea [Unknown]
